FAERS Safety Report 7726750-7 (Version None)
Quarter: 2011Q3

REPORT INFORMATION
  Report Type: 
  Country: None (occurrence: None)
  Receive Date: 20110902
  Receipt Date: 20110824
  Transmission Date: 20111222
  Serious: Yes (Death, Hospitalization)
  Sender: FDA-Public Use
  Company Number: US-GLAXOSMITHKLINE-A0747598A

PATIENT
  Age: 78 Year
  Sex: Female
  Weight: 59.1 kg

DRUGS (5)
  1. AVANDAMET [Suspect]
     Indication: TYPE 2 DIABETES MELLITUS
     Dosage: 4MG PER DAY
     Route: 065
     Dates: start: 20040624, end: 20060130
  2. NAMENDA [Concomitant]
  3. ASPIRIN [Concomitant]
  4. GALANTAMINE HYDROBROMIDE [Concomitant]
  5. AVANDIA [Suspect]
     Indication: TYPE 2 DIABETES MELLITUS
     Dosage: 4MG PER DAY
     Route: 065
     Dates: start: 20040624, end: 20060130

REACTIONS (2)
  - MYOCARDIAL INFARCTION [None]
  - DEATH [None]
